FAERS Safety Report 4276699-X (Version None)
Quarter: 2004Q1

REPORT INFORMATION
  Report Type: 
  Country: None (occurrence: None)
  Receive Date: 20040120
  Receipt Date: 20040106
  Transmission Date: 20041129
  Serious: Yes (Congenital Anomaly, Other)
  Sender: FDA-Public Use
  Company Number: DE-SHR-03-009685

PATIENT
  Sex: Female
  Weight: 3 kg

DRUGS (1)
  1. MIRENA [Suspect]
     Dates: end: 20031021

REACTIONS (12)
  - ASCITES [None]
  - CONGENITAL FOOT MALFORMATION [None]
  - DRUG EXPOSURE DURING PREGNANCY [None]
  - DRUG INTERACTION [None]
  - HYDROPS FOETALIS [None]
  - MATERNAL CONDITION AFFECTING FOETUS [None]
  - MATERNAL DRUGS AFFECTING FOETUS [None]
  - MULTIPLE CONGENITAL ABNORMALITIES [None]
  - OEDEMA [None]
  - PERICARDIAL EFFUSION [None]
  - PREGNANCY [None]
  - PULMONARY HYPOPLASIA [None]
